FAERS Safety Report 19922192 (Version 1)
Quarter: 2021Q4

REPORT INFORMATION
  Report Type: Spontaneous
  Country: CA (occurrence: CA)
  Receive Date: 20211005
  Receipt Date: 20211005
  Transmission Date: 20220303
  Serious: Yes (Other)
  Sender: FDA-Public Use
  Company Number: CA-PFIZER INC-202101258816

PATIENT
  Sex: Female

DRUGS (2)
  1. RITUXIMAB [Suspect]
     Active Substance: RITUXIMAB
     Route: 065
  2. PREDNISONE [Suspect]
     Active Substance: PREDNISONE
     Route: 065

REACTIONS (6)
  - Blood alkaline phosphatase increased [Unknown]
  - Chronic graft versus host disease in liver [Unknown]
  - Depression [Unknown]
  - Drug ineffective [Unknown]
  - Drug intolerance [Unknown]
  - Myopathy [Unknown]
